FAERS Safety Report 21555024 (Version 2)
Quarter: 2022Q4

REPORT INFORMATION
  Report Type: Spontaneous
  Country: US (occurrence: US)
  Receive Date: 20221104
  Receipt Date: 20221119
  Transmission Date: 20230113
  Serious: Yes (Death, Hospitalization)
  Sender: FDA-Public Use
  Company Number: US-TEVA-2022-US-2822735

PATIENT
  Age: 65 Year
  Sex: Male

DRUGS (4)
  1. METHYLPREDNISOLONE [Suspect]
     Active Substance: METHYLPREDNISOLONE
     Indication: Capillary leak syndrome
     Route: 065
  2. TAGRAXOFUSP-ERZS [Suspect]
     Active Substance: TAGRAXOFUSP-ERZS
     Indication: Blastic plasmacytoid dendritic cell neoplasia
     Dosage: RECEIVED 3 OUT OF THE SCHEDULED 5 DOSES
     Route: 065
  3. ALBUMIN HUMAN [Suspect]
     Active Substance: ALBUMIN HUMAN
     Indication: Capillary leak syndrome
     Dosage: 25 GRAM DAILY;
     Route: 065
  4. FUROSEMIDE [Suspect]
     Active Substance: FUROSEMIDE
     Indication: Capillary leak syndrome
     Route: 065

REACTIONS (11)
  - Capillary leak syndrome [Fatal]
  - Cardiogenic shock [Fatal]
  - Acute respiratory failure [Fatal]
  - Multiple organ dysfunction syndrome [Fatal]
  - Weight increased [Fatal]
  - Hypotension [Fatal]
  - Acute kidney injury [Fatal]
  - Blood lactic acid increased [Fatal]
  - Hypertransaminasaemia [Fatal]
  - Blood creatine phosphokinase increased [Fatal]
  - Drug ineffective [Unknown]
